FAERS Safety Report 15506707 (Version 1)
Quarter: 2018Q4

REPORT INFORMATION
  Report Type: Report from Study
  Country: GB (occurrence: GB)
  Receive Date: 20181016
  Receipt Date: 20181016
  Transmission Date: 20190205
  Serious: No
  Sender: FDA-Public Use
  Company Number: GB-IPSEN BIOPHARMACEUTICALS, INC.-2018-06106

PATIENT
  Age: 63 Year
  Sex: Female

DRUGS (4)
  1. SOMATULINE AUTOGEL 90MG [Suspect]
     Active Substance: LANREOTIDE ACETATE
     Indication: ACROMEGALY
     Dosage: 60 MG
     Route: 058
     Dates: start: 20180402
  2. SOMATULINE AUTOGEL 90MG [Suspect]
     Active Substance: LANREOTIDE ACETATE
     Route: 058
     Dates: start: 20180420
  3. SOMATULINE AUTOGEL 90MG [Suspect]
     Active Substance: LANREOTIDE ACETATE
     Route: 058
     Dates: start: 20180409
  4. COCODAMOL [Concomitant]
     Active Substance: ACETAMINOPHEN\CODEINE PHOSPHATE

REACTIONS (11)
  - Wrong technique in product usage process [Unknown]
  - Injection site induration [Unknown]
  - Fibromyalgia [Unknown]
  - Musculoskeletal stiffness [Not Recovered/Not Resolved]
  - Diarrhoea [Recovering/Resolving]
  - Injection site haemorrhage [Unknown]
  - Muscular weakness [Recovered/Resolved]
  - Feeling cold [Not Recovered/Not Resolved]
  - Myalgia [Recovered/Resolved]
  - Joint stiffness [Not Recovered/Not Resolved]
  - Injection site bruising [Unknown]

NARRATIVE: CASE EVENT DATE: 2018
